FAERS Safety Report 13334712 (Version 2)
Quarter: 2017Q2

REPORT INFORMATION
  Report Type: Spontaneous
  Country: US (occurrence: US)
  Receive Date: 20170314
  Receipt Date: 20170414
  Transmission Date: 20170830
  Serious: Yes (Death, Other)
  Sender: FDA-Public Use
  Company Number: US-BRISTOL-MYERS SQUIBB COMPANY-BMS-2017-020060

PATIENT
  Sex: Female

DRUGS (3)
  1. HERCEPTIN [Concomitant]
     Active Substance: TRASTUZUMAB
     Indication: PRODUCT USED FOR UNKNOWN INDICATION
     Dosage: UNK
     Route: 065
  2. OPDIVO [Suspect]
     Active Substance: NIVOLUMAB
     Indication: BREAST CANCER
     Dosage: 69 MG, UNK
     Route: 065
     Dates: start: 20170120, end: 20170303
  3. YERVOY [Suspect]
     Active Substance: IPILIMUMAB
     Indication: BREAST CANCER FEMALE
     Dosage: 208.2 MG, UNK
     Route: 065
     Dates: start: 20170120, end: 20170303

REACTIONS (2)
  - Product use in unapproved indication [Unknown]
  - Death [Fatal]
